FAERS Safety Report 8987504 (Version 1)
Quarter: 2012Q4

REPORT INFORMATION
  Report Type: 
  Country: US (occurrence: US)
  Receive Date: 20121227
  Receipt Date: 20121227
  Transmission Date: 20130627
  Serious: No
  Sender: FDA-Public Use
  Company Number: US-ASTRAZENECA-2011SE27549

PATIENT
  Sex: Female
  Weight: 102.1 kg

DRUGS (5)
  1. ARIMIDEX [Suspect]
     Route: 048
  2. ARIMIDEX [Suspect]
     Dosage: GENERIC
     Route: 048
  3. CRESTOR [Suspect]
     Indication: BLOOD CHOLESTEROL INCREASED
     Route: 048
     Dates: start: 2012
  4. CRESTOR [Suspect]
     Indication: BLOOD CHOLESTEROL INCREASED
     Route: 048
  5. CARVEDILOL [Concomitant]
     Indication: HYPERTENSION

REACTIONS (5)
  - Limb discomfort [Recovered/Resolved]
  - Alopecia [Unknown]
  - Drug dose omission [Unknown]
  - Off label use [Unknown]
  - Drug effect incomplete [Unknown]
